FAERS Safety Report 6259736-2 (Version None)
Quarter: 2009Q3

REPORT INFORMATION
  Report Type: 
  Country: None (occurrence: None)
  Receive Date: 20090706
  Receipt Date: 20090706
  Transmission Date: 20100115
  Serious: Yes (Other)
  Sender: FDA-Public Use
  Company Number: None

PATIENT
  Age: 40 Year
  Sex: Female
  Weight: 74.8435 kg

DRUGS (1)
  1. SERTRALINE [Suspect]
     Indication: OBSESSIVE-COMPULSIVE DISORDER
     Dosage: 100 MG 1 A DAY PO
     Route: 048
     Dates: start: 20081111, end: 20090118

REACTIONS (3)
  - ANXIETY [None]
  - DEPRESSION [None]
  - PRODUCT SUBSTITUTION ISSUE [None]
